FAERS Safety Report 22142413 (Version 1)
Quarter: 2023Q1

REPORT INFORMATION
  Report Type: Spontaneous
  Country: US (occurrence: US)
  Receive Date: 20230327
  Receipt Date: 20230327
  Transmission Date: 20230418
  Serious: No
  Sender: FDA-Public Use
  Company Number: US-UPSHER-SMITH LABORATORIES, LLC-2023USL00045

PATIENT
  Sex: Female

DRUGS (1)
  1. PREVALITE [Suspect]
     Active Substance: CHOLESTYRAMINE
     Dosage: UNK

REACTIONS (2)
  - Stomatitis [Not Recovered/Not Resolved]
  - Gluten sensitivity [Not Recovered/Not Resolved]
